FAERS Safety Report 7360599-2 (Version None)
Quarter: 2011Q1

REPORT INFORMATION
  Report Type: 
  Country: None (occurrence: None)
  Receive Date: 20110318
  Receipt Date: 20110310
  Transmission Date: 20110831
  Serious: Yes (Other)
  Sender: FDA-Public Use
  Company Number: IT-TEVA-271294ISR

PATIENT
  Sex: Female

DRUGS (6)
  1. SIMVASTATIN [Concomitant]
     Route: 048
  2. BISOPROLOL FUMARATE [Concomitant]
     Route: 048
  3. ACARBOSE [Concomitant]
     Route: 048
  4. PIOGLITAZONE HCL [Suspect]
     Indication: TYPE 2 DIABETES MELLITUS
     Route: 048
     Dates: start: 20110216, end: 20110220
  5. RAMIPRIL [Concomitant]
     Route: 048
  6. METFORMIN HCL [Suspect]
     Indication: TYPE 2 DIABETES MELLITUS
     Route: 048
     Dates: start: 20110216, end: 20110220

REACTIONS (3)
  - AMNESIA [None]
  - CONFUSIONAL STATE [None]
  - HYPERGLYCAEMIA [None]
